FAERS Safety Report 9733013 (Version 1)
Quarter: 2013Q4

REPORT INFORMATION
  Report Type: Spontaneous
  Country: FR (occurrence: FR)
  Receive Date: 20131205
  Receipt Date: 20131205
  Transmission Date: 20140711
  Serious: Yes (Hospitalization, Other)
  Sender: FDA-Public Use
  Company Number: FR-PFIZER INC-2013344245

PATIENT
  Age: 38 Year
  Sex: Female

DRUGS (2)
  1. ADVIL [Suspect]
     Indication: SINUSITIS
     Dosage: 4 G, DAILY
     Route: 048
     Dates: end: 20131028
  2. CAFFEINE/OPIUM/PARACETAMOL [Concomitant]

REACTIONS (11)
  - Renal failure acute [Recovered/Resolved with Sequelae]
  - Thrombocytopenia [Recovered/Resolved]
  - Nausea [Unknown]
  - Jaundice [Unknown]
  - Headache [Unknown]
  - Vomiting [Unknown]
  - Musculoskeletal pain [Unknown]
  - Hepatic pain [Unknown]
  - Hypertension [Unknown]
  - Aspartate aminotransferase increased [Unknown]
  - Alanine aminotransferase increased [Unknown]
